FAERS Safety Report 18862460 (Version 1)
Quarter: 2021Q1

REPORT INFORMATION
  Report Type: Other
  Country: FR (occurrence: FR)
  Receive Date: 20210208
  Receipt Date: 20210208
  Transmission Date: 20210420
  Serious: Yes (Hospitalization)
  Sender: FDA-Public Use
  Company Number: FR-ROCHE-2420680

PATIENT

DRUGS (8)
  1. TACROLIMUS. [Suspect]
     Active Substance: TACROLIMUS
     Indication: FOCAL SEGMENTAL GLOMERULOSCLEROSIS
     Route: 042
  2. MYCOPHENOLATE MOFETIL. [Suspect]
     Active Substance: MYCOPHENOLATE MOFETIL
     Indication: FOCAL SEGMENTAL GLOMERULOSCLEROSIS
     Route: 065
  3. ANTITHYMOCYTE IMMUNOGLOBULIN (RABBIT) [Suspect]
     Active Substance: LAPINE T-LYMPHOCYTE IMMUNE GLOBULIN
     Indication: FOCAL SEGMENTAL GLOMERULOSCLEROSIS
     Route: 065
  4. CYCLOSPORINE. [Suspect]
     Active Substance: CYCLOSPORINE
     Indication: FOCAL SEGMENTAL GLOMERULOSCLEROSIS
     Route: 042
  5. BASILIXIMAB [Suspect]
     Active Substance: BASILIXIMAB
     Indication: FOCAL SEGMENTAL GLOMERULOSCLEROSIS
     Route: 065
  6. TACROLIMUS. [Suspect]
     Active Substance: TACROLIMUS
     Route: 048
  7. CYCLOSPORINE. [Suspect]
     Active Substance: CYCLOSPORINE
     Route: 048
  8. RITUXIMAB. [Suspect]
     Active Substance: RITUXIMAB
     Indication: FOCAL SEGMENTAL GLOMERULOSCLEROSIS
     Route: 042

REACTIONS (14)
  - Sepsis [Unknown]
  - Infection parasitic [Unknown]
  - Pyelonephritis [Unknown]
  - Bacterial infection [Unknown]
  - Pneumonia [Unknown]
  - Hypogammaglobulinaemia [Unknown]
  - Dermatophytosis [Unknown]
  - Infection [Unknown]
  - Cytomegalovirus infection [Unknown]
  - Fungal infection [Unknown]
  - Polyomavirus viraemia [Unknown]
  - Viral infection [Unknown]
  - Herpes simplex [Unknown]
  - Pneumocystis jirovecii pneumonia [Unknown]
